FAERS Safety Report 10570780 (Version 1)
Quarter: 2014Q4

REPORT INFORMATION
  Report Type: Spontaneous
  Country: US (occurrence: None)
  Receive Date: 20141106
  Receipt Date: 20141106
  Transmission Date: 20150529
  Serious: No
  Sender: FDA-Public Use
  Company Number: None

PATIENT

DRUGS (1)
  1. RESPERAL [Suspect]
     Active Substance: DEXCHLORPHENIRAMINE\DEXTROMETHORPHAN\PHENYLEPHRINE\PYRILAMINE
     Dates: start: 2002

REACTIONS (7)
  - Weight increased [None]
  - Night sweats [None]
  - Headache [None]
  - Dry mouth [None]
  - Muscle spasms [None]
  - Balance disorder [None]
  - Breast enlargement [None]

NARRATIVE: CASE EVENT DATE: 2002
